FAERS Safety Report 15670639 (Version 3)
Quarter: 2019Q1

REPORT INFORMATION
  Report Type: Spontaneous
  Country: GB (occurrence: GB)
  Receive Date: 20181129
  Receipt Date: 20190205
  Transmission Date: 20190417
  Serious: Yes (Hospitalization, Other)
  Sender: FDA-Public Use
  Company Number: GB-ELI_LILLY_AND_COMPANY-GB201811010652

PATIENT
  Age: 48 Year
  Sex: Male

DRUGS (4)
  1. ZAPONEX [Suspect]
     Active Substance: CLOZAPINE
     Indication: SCHIZOPHRENIA
     Dosage: 150MG AND 250 MG, UNK
     Route: 048
     Dates: start: 20181002, end: 201810
  2. BISOPROLOL [Concomitant]
     Active Substance: BISOPROLOL
     Indication: TACHYCARDIA
     Dosage: UNK UNK, UNKNOWN
     Route: 065
     Dates: start: 2018
  3. ZAPONEX [Suspect]
     Active Substance: CLOZAPINE
     Dosage: 125 MG, DAILY
     Route: 048
     Dates: start: 201810
  4. OLANZAPINE. [Suspect]
     Active Substance: OLANZAPINE
     Indication: PRODUCT USED FOR UNKNOWN INDICATION
     Dosage: UNK UNK, UNKNOWN
     Route: 065

REACTIONS (13)
  - Tachycardia [Recovered/Resolved]
  - Lower respiratory tract infection viral [Recovered/Resolved]
  - Acute kidney injury [Recovered/Resolved]
  - Pyrexia [Recovered/Resolved]
  - White blood cell count increased [Recovered/Resolved]
  - Eosinophil count increased [Not Recovered/Not Resolved]
  - Dizziness [Recovered/Resolved]
  - Neutrophil count increased [Not Recovered/Not Resolved]
  - Platelet count increased [Not Recovered/Not Resolved]
  - Agitation [Recovered/Resolved]
  - C-reactive protein increased [Not Recovered/Not Resolved]
  - Confusional state [Recovered/Resolved]
  - Sepsis [Not Recovered/Not Resolved]

NARRATIVE: CASE EVENT DATE: 201810
